FAERS Safety Report 23884348 (Version 1)
Quarter: 2024Q2

REPORT INFORMATION
  Report Type: Spontaneous
  Country: US (occurrence: US)
  Receive Date: 20240522
  Receipt Date: 20240522
  Transmission Date: 20240716
  Serious: Yes (Other)
  Sender: FDA-Public Use
  Company Number: US-CATALYST PHARMACEUTICALS, INC-US-CATA-24-00144

PATIENT
  Age: 11 Year
  Sex: Male
  Weight: 40.816 kg

DRUGS (4)
  1. AGAMREE [Suspect]
     Active Substance: VAMOROLONE
     Indication: Duchenne muscular dystrophy
     Dosage: 5.8 ML ONCE DAILY
     Route: 048
     Dates: start: 20231220
  2. LISINOPRIL [Concomitant]
     Active Substance: LISINOPRIL
     Indication: Cardiac disorder
     Dosage: 2.5 MG DAILY
     Route: 065
     Dates: start: 20210201
  3. OMEPRAZOLE [Concomitant]
     Active Substance: DONEPEZIL HYDROCHLORIDE\OMEPRAZOLE\OMEPRAZOLE MAGNESIUM
     Indication: Gastrooesophageal reflux disease
     Dosage: 20 MG DAILY
     Route: 065
     Dates: start: 20190801
  4. PROZAC [Concomitant]
     Active Substance: FLUOXETINE HYDROCHLORIDE
     Indication: Abnormal behaviour
     Dosage: 20 MG DAILY
     Route: 065
     Dates: start: 2024

REACTIONS (4)
  - Cataract [Not Recovered/Not Resolved]
  - Nasopharyngitis [Recovered/Resolved]
  - Ear disorder [Recovered/Resolved]
  - Increased appetite [Not Recovered/Not Resolved]

NARRATIVE: CASE EVENT DATE: 20240201
